FAERS Safety Report 4995357-7 (Version None)
Quarter: 2006Q2

REPORT INFORMATION
  Report Type: 
  Country: None (occurrence: None)
  Receive Date: 20060508
  Receipt Date: 20050301
  Transmission Date: 20061013
  Serious: Yes (Hospitalization)
  Sender: FDA-Public Use
  Company Number: DE-BRISTOL-MYERS SQUIBB COMPANY-13349352

PATIENT
  Sex: Female
  Weight: 37 kg

DRUGS (12)
  1. VIDEX [Suspect]
     Indication: HIV INFECTION
     Dates: start: 20040210
  2. ABACAVIR [Concomitant]
     Indication: HIV INFECTION
     Dates: start: 20040204
  3. LAMIVUDINE [Concomitant]
     Indication: HIV INFECTION
     Dates: start: 20040204
  4. ZIDOVUDINE [Concomitant]
     Indication: HIV INFECTION
     Dates: start: 20040204
  5. LOPINAVIR [Concomitant]
     Indication: HIV INFECTION
     Dosage: STARTED AT 2X400, AFTER 01-APR-2004 CHANGED TO 266 MG
     Dates: start: 20040311
  6. RITONAVIR [Concomitant]
     Indication: HIV INFECTION
     Dosage: STARTED AT 2X100 MG, AFTER 01-APR-2004, DOSE CHANGED TO 66MG
     Dates: start: 20040311
  7. RIFAMPICIN [Concomitant]
     Indication: TUBERCULOSIS
     Dates: start: 20040126
  8. ISONIAZID [Concomitant]
     Indication: TUBERCULOSIS
     Dates: start: 20040126
  9. ETHAMBUTOL [Concomitant]
     Indication: TUBERCULOSIS
     Dates: start: 20040126
  10. PYRAZINAMIDE [Concomitant]
     Indication: TUBERCULOSIS
     Dates: start: 20040126
  11. PROTHIONAMIDE [Concomitant]
     Indication: TUBERCULOSIS
  12. VANCOMYCIN [Concomitant]
     Indication: CLOSTRIDIUM DIFFICILE COLITIS
     Dates: start: 20040101

REACTIONS (21)
  - ABDOMINAL DISCOMFORT [None]
  - ABDOMINAL PAIN [None]
  - CLOSTRIDIUM DIFFICILE COLITIS [None]
  - DIARRHOEA [None]
  - HEPATITIS CHOLESTATIC [None]
  - HEPATITIS TOXIC [None]
  - HEPATOSPLENOMEGALY [None]
  - KAPOSI'S SARCOMA [None]
  - LEUKOPENIA [None]
  - LYMPHADENOPATHY [None]
  - LYMPHADENOPATHY MEDIASTINAL [None]
  - NAUSEA [None]
  - NON-HODGKIN'S LYMPHOMA [None]
  - OCULAR ICTERUS [None]
  - OEDEMA PERIPHERAL [None]
  - PRURITUS GENERALISED [None]
  - PYREXIA [None]
  - SKIN DISCOLOURATION [None]
  - TRANSAMINASES INCREASED [None]
  - TUBERCULOSIS [None]
  - WEIGHT DECREASED [None]
